FAERS Safety Report 5996907-4 (Version None)
Quarter: 2008Q4

REPORT INFORMATION
  Report Type: 
  Country: None (occurrence: None)
  Receive Date: 20081212
  Receipt Date: 20081028
  Transmission Date: 20090506
  Serious: No
  Sender: FDA-Public Use
  Company Number: US-ABBOTT-08P-163-0484330-00

PATIENT
  Sex: Female
  Weight: 61.29 kg

DRUGS (4)
  1. HUMIRA [Suspect]
     Indication: UVEITIS
     Route: 058
     Dates: start: 20080501
  2. HUMIRA [Suspect]
     Indication: IRITIS
  3. GALENIC /DORZOLAMIDE/TIMOLOL/ [Concomitant]
     Indication: GLAUCOMA
  4. BRIMONIDINE [Concomitant]
     Indication: GLAUCOMA

REACTIONS (1)
  - WEIGHT INCREASED [None]
